FAERS Safety Report 8519274-0 (Version None)
Quarter: 2012Q3

REPORT INFORMATION
  Report Type: 
  Country: None (occurrence: None)
  Receive Date: 20120718
  Receipt Date: 20120704
  Transmission Date: 20120928
  Serious: Yes (Other)
  Sender: FDA-Public Use
  Company Number: DE-ELI_LILLY_AND_COMPANY-DE201207001027

PATIENT
  Age: 18 Month
  Sex: Female
  Weight: 10 kg

DRUGS (1)
  1. CYMBALTA [Suspect]
     Dosage: 30 MG, SINGLE
     Route: 048
     Dates: start: 20120703, end: 20120703

REACTIONS (4)
  - ABNORMAL BEHAVIOUR [None]
  - DYSPHAGIA [None]
  - WRONG DRUG ADMINISTERED [None]
  - ACCIDENTAL OVERDOSE [None]
